FAERS Safety Report 9354059 (Version 1)
Quarter: 2013Q2

REPORT INFORMATION
  Report Type: Spontaneous
  Country: US (occurrence: US)
  Receive Date: 20130618
  Receipt Date: 20130618
  Transmission Date: 20140414
  Serious: No
  Sender: FDA-Public Use
  Company Number: US-009507513-1306USA006918

PATIENT
  Sex: Male
  Weight: 89.34 kg

DRUGS (6)
  1. VICTRELIS [Suspect]
     Indication: HEPATITIS C
     Dosage: 4 CAPSULES ( 800MG) BY MOUTH THREE TIMES A DAY (EVERY 7 TO 9 HOURS) WITH FOOD
     Route: 048
  2. PEGASYS [Suspect]
     Indication: HEPATITIS C
     Dosage: 180 MICROGRAM/M
  3. RIBASPHERE [Suspect]
     Indication: HEPATITIS C
  4. LISINOPRIL [Concomitant]
     Dosage: UNK
  5. MIDODRINE HYDROCHLORIDE [Concomitant]
  6. MILK THISTLE [Concomitant]

REACTIONS (7)
  - Balance disorder [Unknown]
  - Burning sensation [Unknown]
  - Hypoaesthesia [Unknown]
  - Pain [Unknown]
  - Influenza like illness [Unknown]
  - Dizziness [Unknown]
  - Fatigue [Unknown]
